FAERS Safety Report 17607026 (Version 1)
Quarter: 2020Q1

REPORT INFORMATION
  Report Type: Spontaneous
  Country: DE (occurrence: DE)
  Receive Date: 20200331
  Receipt Date: 20200331
  Transmission Date: 20200409
  Serious: Yes (Other)
  Sender: FDA-Public Use
  Company Number: DE-BRACCO-2020DE01475

PATIENT
  Age: 63 Year
  Sex: Female
  Weight: 75 kg

DRUGS (2)
  1. PROHANCE [Suspect]
     Active Substance: GADOTERIDOL
     Indication: MAGNETIC RESONANCE IMAGING
     Dosage: AT 62KG
     Route: 042
     Dates: start: 2012, end: 2012
  2. L-THYROXIN [Concomitant]
     Active Substance: LEVOTHYROXINE SODIUM
     Indication: HYPOTHYROIDISM
     Dates: start: 2006

REACTIONS (10)
  - Bone pain [Unknown]
  - Tendon pain [Unknown]
  - Dizziness [Unknown]
  - Myalgia [Unknown]
  - Adverse reaction [Unknown]
  - Tinnitus [Unknown]
  - Hypothyroidism [Unknown]
  - Balance disorder [Unknown]
  - Skin discomfort [Unknown]
  - Performance status decreased [Unknown]
